FAERS Safety Report 16381699 (Version 3)
Quarter: 2025Q3

REPORT INFORMATION
  Report Type: Spontaneous
  Country: EU (occurrence: EU)
  Receive Date: 20190603
  Receipt Date: 20250912
  Transmission Date: 20251021
  Serious: Yes (Life-Threatening, Hospitalization, Other)
  Sender: SANOFI AVENTIS
  Company Number: EU-SA-2019SA150639

PATIENT
  Age: 24 Year
  Sex: Male

DRUGS (8)
  1. PREDNISOLONE [Suspect]
     Active Substance: PREDNISOLONE
     Indication: Immunosuppressant drug therapy
     Dosage: 10 MG, QD (1-3 MONTHS 0.3 MG/KG, 3-6 MONTHS 0.2 MG/KG FOLLOWED BY 10 MG/D)
     Dates: start: 2013
  2. PREDNISOLONE [Suspect]
     Active Substance: PREDNISOLONE
     Dates: start: 2012
  3. PREDNISOLONE [Suspect]
     Active Substance: PREDNISOLONE
  4. ANTI-THYMOCYTE GLOBULIN (RABBIT) NOS [Suspect]
     Active Substance: LAPINE T-LYMPHOCYTE IMMUNE GLOBULIN
     Indication: Immunosuppressant drug therapy
     Dates: start: 2012
  5. MYCOPHENOLATE MOFETIL [Suspect]
     Active Substance: MYCOPHENOLATE MOFETIL
     Indication: Immunosuppressant drug therapy
     Dosage: 1000 MG, Q12H (2X1000 MG)
     Dates: start: 2012, end: 20130101
  6. TACROLIMUS [Suspect]
     Active Substance: TACROLIMUS
     Indication: Immunosuppressant drug therapy
  7. TACROLIMUS [Suspect]
     Active Substance: TACROLIMUS
     Dates: start: 2012
  8. TACROLIMUS [Suspect]
     Active Substance: TACROLIMUS
     Dates: start: 2013

REACTIONS (1)
  - Testis cancer [Recovered/Resolved]

NARRATIVE: CASE EVENT DATE: 20130101
